FAERS Safety Report 24456010 (Version 2)
Quarter: 2024Q4

REPORT INFORMATION
  Report Type: Report from Study
  Country: CA (occurrence: CA)
  Receive Date: 20241017
  Receipt Date: 20241018
  Transmission Date: 20250115
  Serious: No
  Sender: ROCHE
  Company Number: CA-ROCHE-3508927

PATIENT
  Age: 48 Year
  Sex: Female

DRUGS (12)
  1. RITUXAN [Suspect]
     Active Substance: RITUXIMAB
     Indication: Lupus nephritis
     Dosage: FREQUENCY TEXT:DAY 1 AND 15
     Route: 041
     Dates: start: 20201020, end: 20201109
  2. RITUXAN [Suspect]
     Active Substance: RITUXIMAB
     Dosage: DRUG DOSE FIRST ADMINISTERED IS 500 MG.
     Route: 042
     Dates: start: 20210517
  3. RITUXAN [Suspect]
     Active Substance: RITUXIMAB
     Route: 065
  4. CALCIUM [Concomitant]
     Active Substance: CALCIUM
  5. HYDROXYCHLOROQUINE [Concomitant]
     Active Substance: HYDROXYCHLOROQUINE
  6. PANTOPRAZOLE [Concomitant]
     Active Substance: PANTOPRAZOLE
  7. ROSUVASTATIN [Concomitant]
     Active Substance: ROSUVASTATIN
  8. VITAMIN D3 [Concomitant]
     Active Substance: CHOLECALCIFEROL
  9. BENADRYL [Concomitant]
     Active Substance: DIPHENHYDRAMINE HYDROCHLORIDE
  10. CANDESARTAN [Concomitant]
     Active Substance: CANDESARTAN
  11. PREDNISONE [Concomitant]
     Active Substance: PREDNISONE
  12. TYLENOL [Concomitant]
     Active Substance: ACETAMINOPHEN
     Route: 048
     Dates: start: 20201020

REACTIONS (5)
  - Fall [Unknown]
  - Headache [Unknown]
  - Pyrexia [Unknown]
  - Cough [Unknown]
  - Head injury [Unknown]

NARRATIVE: CASE EVENT DATE: 20240205
